FAERS Safety Report 8580085-1 (Version None)
Quarter: 2012Q3

REPORT INFORMATION
  Report Type: 
  Country: None (occurrence: None)
  Receive Date: 20120808
  Receipt Date: 20120801
  Transmission Date: 20120928
  Serious: No
  Sender: FDA-Public Use
  Company Number: US-PFIZER INC-2012188130

PATIENT

DRUGS (1)
  1. TOVIAZ [Suspect]
     Dosage: 8 MG, UNK

REACTIONS (2)
  - WEIGHT DECREASED [None]
  - DECREASED APPETITE [None]
